FAERS Safety Report 9237349 (Version 1)
Quarter: 2013Q2

REPORT INFORMATION
  Report Type: Spontaneous
  Country: US (occurrence: US)
  Receive Date: 20130417
  Receipt Date: 20130417
  Transmission Date: 20140414
  Serious: No
  Sender: FDA-Public Use
  Company Number: US-UPSHER-SMITH LABORATORIES, INC.-13001240

PATIENT
  Sex: Female

DRUGS (3)
  1. POTASSIUM CHLORIDE MICRO-DISPERSIBLE [Suspect]
     Indication: MINERAL SUPPLEMENTATION
     Dosage: 10 MEQ, BID
     Dates: start: 201301, end: 20130406
  2. HYDROCHLOROTHIAZIDE [Concomitant]
     Dosage: UNK
  3. ANTIHYPERTENSIVES [Concomitant]
     Dosage: UNK

REACTIONS (2)
  - Choking [Recovered/Resolved]
  - Cough [Recovered/Resolved]
